FAERS Safety Report 4342749-5 (Version None)
Quarter: 2004Q2

REPORT INFORMATION
  Report Type: 
  Country: None (occurrence: None)
  Receive Date: 20040416
  Receipt Date: 20040405
  Transmission Date: 20050107
  Serious: Yes (Other)
  Sender: FDA-Public Use
  Company Number: 200314750BCC

PATIENT
  Age: 84 Year
  Sex: Female
  Weight: 58.9676 kg

DRUGS (5)
  1. ALEVE COLD AND SINUS [Suspect]
     Indication: BACK PAIN
     Dosage: 270 MG, QD, ORAL
     Route: 048
     Dates: start: 20031205, end: 20031214
  2. ALAVERT [Concomitant]
  3. PRILOSEC [Concomitant]
  4. SYNTHROID [Concomitant]
  5. TIMOLOL MALEATE [Concomitant]

REACTIONS (2)
  - SYNCOPE [None]
  - VERTIGO [None]
